FAERS Safety Report 9639165 (Version 2)
Quarter: 2013Q4

REPORT INFORMATION
  Report Type: Spontaneous
  Country: US (occurrence: US)
  Receive Date: 20131022
  Receipt Date: 20131105
  Transmission Date: 20140711
  Serious: Yes (Hospitalization, Other)
  Sender: FDA-Public Use
  Company Number: US-GILEAD-2013-0085927

PATIENT
  Age: 93 Year
  Sex: Female

DRUGS (2)
  1. LETAIRIS [Suspect]
     Indication: PRODUCT USED FOR UNKNOWN INDICATION
     Dosage: 10 MG, QD
     Route: 048
     Dates: start: 20130424
  2. TYVASO [Concomitant]

REACTIONS (4)
  - Pulmonary oedema [Unknown]
  - Syncope [Unknown]
  - Dyspnoea [Unknown]
  - Oedema [Unknown]
